FAERS Safety Report 16650640 (Version 2)
Quarter: 2019Q3

REPORT INFORMATION
  Report Type: Spontaneous
  Country: CA (occurrence: CA)
  Receive Date: 20190731
  Receipt Date: 20190920
  Transmission Date: 20191004
  Serious: Yes (Other)
  Sender: FDA-Public Use
  Company Number: CA-ORION CORPORATION ORION PHARMA-TREX2019-2540

PATIENT
  Age: 44 Year
  Sex: Female

DRUGS (16)
  1. METHOTREXATE (TRADE NAME UNKNOWN) [Suspect]
     Active Substance: METHOTREXATE
     Indication: MYOPATHY
     Route: 058
  2. AZATHIOPRINE. [Interacting]
     Active Substance: AZATHIOPRINE
     Route: 065
  3. ULORIC [Suspect]
     Active Substance: FEBUXOSTAT
     Indication: IMMUNE-MEDIATED NECROTISING MYOPATHY
     Route: 058
  4. AZATHIOPRINE. [Interacting]
     Active Substance: AZATHIOPRINE
     Route: 065
  5. RITUXIMAB. [Interacting]
     Active Substance: RITUXIMAB
     Indication: PRODUCT USED FOR UNKNOWN INDICATION
     Route: 065
  6. AZATHIOPRINE. [Interacting]
     Active Substance: AZATHIOPRINE
     Indication: MYOPATHY
     Route: 065
  7. ALLOPURINOL. [Interacting]
     Active Substance: ALLOPURINOL
     Indication: MYOPATHY
     Route: 065
  8. ALLOPURINOL. [Interacting]
     Active Substance: ALLOPURINOL
     Indication: IMMUNE-MEDIATED NECROTISING MYOPATHY
     Route: 065
  9. FEBUXOSTAT. [Interacting]
     Active Substance: FEBUXOSTAT
     Indication: PRODUCT USED FOR UNKNOWN INDICATION
     Route: 065
  10. MYCOPHENOLATE MOFETIL. [Interacting]
     Active Substance: MYCOPHENOLATE MOFETIL
     Indication: PRODUCT USED FOR UNKNOWN INDICATION
     Route: 058
  11. RITUXAN [Suspect]
     Active Substance: RITUXIMAB
     Indication: PRODUCT USED FOR UNKNOWN INDICATION
     Route: 065
  12. CORTICOSTEROID NOS [Interacting]
     Active Substance: CORTICOSTEROID NOS
     Route: 065
  13. AZATHIOPRINE. [Interacting]
     Active Substance: AZATHIOPRINE
     Indication: IMMUNE-MEDIATED NECROTISING MYOPATHY
     Route: 065
  14. AZATHIOPRINE. [Interacting]
     Active Substance: AZATHIOPRINE
     Route: 065
  15. PLACEBO [Interacting]
     Active Substance: UNSPECIFIED INGREDIENT
     Indication: PRODUCT USED FOR UNKNOWN INDICATION
     Route: 065
  16. ULORIC [Suspect]
     Active Substance: FEBUXOSTAT
     Indication: MYOPATHY
     Route: 065

REACTIONS (8)
  - Drug ineffective [Recovering/Resolving]
  - Drug interaction [Recovering/Resolving]
  - Myopathy [Recovering/Resolving]
  - Drug reaction with eosinophilia and systemic symptoms [Recovering/Resolving]
  - Hepatic mass [Recovering/Resolving]
  - Product use in unapproved indication [Recovering/Resolving]
  - Eosinophilia [Recovering/Resolving]
  - Pyrexia [Recovering/Resolving]
